FAERS Safety Report 6911872-0 (Version None)
Quarter: 2010Q3

REPORT INFORMATION
  Report Type: 
  Country: None (occurrence: None)
  Receive Date: 20100806
  Receipt Date: 20071005
  Transmission Date: 20110219
  Serious: No
  Sender: FDA-Public Use
  Company Number: US-PFIZER INC-2007084841

PATIENT
  Sex: Female
  Weight: 42.272 kg

DRUGS (6)
  1. DETROL LA [Suspect]
     Indication: POLLAKIURIA
     Dates: start: 20071004
  2. ZETIA [Concomitant]
  3. PLAVIX [Concomitant]
  4. MONOPRIL [Concomitant]
  5. ACETYLSALICYLIC ACID SRT [Concomitant]
  6. MULTI-VITAMINS [Concomitant]

REACTIONS (1)
  - DIZZINESS [None]
